FAERS Safety Report 23478895 (Version 1)
Quarter: 2024Q1

REPORT INFORMATION
  Report Type: Report from Study
  Country: CO (occurrence: CO)
  Receive Date: 20240205
  Receipt Date: 20240205
  Transmission Date: 20240410
  Serious: No
  Sender: FDA-Public Use
  Company Number: CO-IPSEN Group, Research and Development-2023-24844

PATIENT
  Age: 51 Year
  Sex: Male
  Weight: 72 kg

DRUGS (8)
  1. CABOMETYX [Suspect]
     Active Substance: CABOZANTINIB S-MALATE
     Indication: Renal cell carcinoma
     Dosage: 40 MG, BID
     Route: 048
     Dates: start: 20231026
  2. NIVOLUMAB [Suspect]
     Active Substance: NIVOLUMAB
     Indication: Renal cell carcinoma
     Dosage: 40 MG
     Route: 042
     Dates: start: 2021
  3. NIVOLUMAB [Suspect]
     Active Substance: NIVOLUMAB
     Dosage: 100 MG IN 10 ML
     Route: 042
     Dates: start: 2021
  4. MORPHINE [Concomitant]
     Active Substance: MORPHINE
     Indication: Pain management
     Dosage: 30MG/1ML, 6 DROPS, Q4HR
     Route: 048
     Dates: start: 2022
  5. APIXABAN [Concomitant]
     Active Substance: APIXABAN
     Indication: Pulmonary embolism
     Dosage: 5 MG, BID
     Route: 048
     Dates: start: 202308
  6. QUETIAPINE [Concomitant]
     Active Substance: QUETIAPINE
     Indication: Sleep disorder
     Dosage: 1 TABLET, QD
     Route: 048
     Dates: start: 2022
  7. FENTANYL [Concomitant]
     Active Substance: FENTANYL\FENTANYL CITRATE
     Indication: Pain management
     Dosage: 50 MG (1 PATCH EVERY 3 DAYS)
     Route: 062
     Dates: start: 20230820
  8. ENOXAPARIN [Concomitant]
     Active Substance: ENOXAPARIN
     Indication: Anticoagulant therapy
     Dosage: 80 MG 0.8ML (1 APPLICATION), QD
     Route: 058

REACTIONS (2)
  - Product prescribing error [Unknown]
  - Off label use [Unknown]

NARRATIVE: CASE EVENT DATE: 20231026
